FAERS Safety Report 8576190 (Version 3)
Quarter: 2013Q2

REPORT INFORMATION
  Report Type: Report from Study
  Country: JP (occurrence: JP)
  Receive Date: 20120523
  Receipt Date: 20130605
  Transmission Date: 20140414
  Serious: Yes (Death, Life-Threatening, Other)
  Sender: FDA-Public Use
  Company Number: JP-BRISTOL-MYERS SQUIBB COMPANY-16597924

PATIENT
  Age: 74 Year
  Sex: Male

DRUGS (10)
  1. SPRYCEL [Suspect]
     Indication: CHRONIC MYELOID LEUKAEMIA
     Dosage: 27FEB-6MAR12-100MG/D?13MAR-20APR12-50MG/D?24APR-6MAY12-50MG/D?INTER:7MAR-12MAR
     Route: 048
     Dates: start: 20120227, end: 20120506
  2. MARZULENE-S [Concomitant]
     Dosage: GRANULES
     Route: 048
     Dates: end: 20120506
  3. DEPAKENE [Concomitant]
     Route: 048
     Dates: end: 20120506
  4. ALOSENN [Concomitant]
     Dosage: GRANULES
     Route: 048
     Dates: end: 20120506
  5. AMLODIN [Concomitant]
     Dosage: TABS
     Route: 048
     Dates: end: 20120506
  6. AMOBAN [Concomitant]
     Dosage: TABS
     Route: 048
     Dates: end: 20120506
  7. HALCION [Concomitant]
     Dosage: TABS
     Route: 048
     Dates: end: 20120506
  8. BASEN [Concomitant]
     Dosage: TABS
     Route: 048
     Dates: end: 20120506
  9. PREDNISOLONE [Concomitant]
     Dosage: 27FEB-4MAR12-5MG/D?5-11MAR12-2.5MG/D
     Route: 048
     Dates: start: 20120227, end: 20120311
  10. TAKEPRON [Concomitant]
     Dosage: TAB
     Route: 048
     Dates: start: 20120220, end: 20120506

REACTIONS (4)
  - Cardio-respiratory arrest [Fatal]
  - Cerebral infarction [Fatal]
  - Pleural effusion [Not Recovered/Not Resolved]
  - Bronchopneumonia [Recovering/Resolving]
